FAERS Safety Report 6633803-3 (Version None)
Quarter: 2010Q1

REPORT INFORMATION
  Report Type: 
  Country: None (occurrence: None)
  Receive Date: 20100315
  Receipt Date: 20100304
  Transmission Date: 20100710
  Serious: Yes (Hospitalization)
  Sender: FDA-Public Use
  Company Number: US-JNJFOC-20100302305

PATIENT
  Sex: Male
  Weight: 66.1 kg

DRUGS (4)
  1. INFLIXIMAB [Suspect]
     Indication: INFLAMMATORY BOWEL DISEASE
     Route: 042
  2. HUMIRA [Concomitant]
  3. 5-ASA [Concomitant]
  4. MERCAPTOPURINE [Concomitant]

REACTIONS (2)
  - SELF INJURIOUS BEHAVIOUR [None]
  - SUICIDAL IDEATION [None]
